FAERS Safety Report 22605247 (Version 1)
Quarter: 2023Q2

REPORT INFORMATION
  Report Type: Spontaneous
  Country: US (occurrence: None)
  Receive Date: 20230614
  Receipt Date: 20230614
  Transmission Date: 20230721
  Serious: No
  Sender: FDA-Public Use
  Company Number: None

PATIENT
  Sex: Female

DRUGS (15)
  1. ERLOTINIB [Suspect]
     Active Substance: ERLOTINIB
     Indication: Pancreatic carcinoma
     Dosage: OTHER QUANTITY : 1T;?FREQUENCY : DAILY;?
     Route: 048
  2. ZOFRAN [Concomitant]
     Active Substance: ONDANSETRON HYDROCHLORIDE
  3. TRAMADOL [Concomitant]
     Active Substance: TRAMADOL
  4. PROBIOTIC ADULT [Concomitant]
  5. ZYRTEC [Concomitant]
     Active Substance: CETIRIZINE HYDROCHLORIDE
  6. CALTRATE [Concomitant]
     Active Substance: CALCIUM CARBONATE
  7. HAIR/SKIN/NAILS [Concomitant]
  8. VITAMIN D3 [Concomitant]
     Active Substance: CHOLECALCIFEROL
  9. MEGAVITE FRUITS/VEGGIES [Concomitant]
  10. DULCOLAX NOS [Concomitant]
     Active Substance: BISACODYL OR DOCUSATE SODIUM
  11. MICRAZYM [Concomitant]
  12. DIPHENHYDRAMINE [Concomitant]
     Active Substance: DIPHENHYDRAMINE
  13. ALEVE [Concomitant]
     Active Substance: NAPROXEN SODIUM
  14. ACETAMINOPHEN [Concomitant]
     Active Substance: ACETAMINOPHEN
  15. OXYCODONE [Concomitant]
     Active Substance: OXYCODONE

REACTIONS (1)
  - Hospice care [None]
